FAERS Safety Report 6048958-1 (Version None)
Quarter: 2009Q1

REPORT INFORMATION
  Report Type: 
  Country: None (occurrence: None)
  Receive Date: 20090123
  Receipt Date: 20090113
  Transmission Date: 20090719
  Serious: Yes (Hospitalization)
  Sender: FDA-Public Use
  Company Number: US-ELI_LILLY_AND_COMPANY-US200812002360

PATIENT
  Sex: Female
  Weight: 156.46 kg

DRUGS (14)
  1. BYETTA [Suspect]
     Dosage: 5 UG, 2/D
     Route: 065
     Dates: start: 20061021, end: 20070101
  2. TRICOR [Concomitant]
  3. NOVOLOG [Concomitant]
     Dosage: 60 U, 3/D
  4. LANTUS [Concomitant]
     Dosage: 50 U, EACH MORNING
  5. LANTUS [Concomitant]
     Dosage: 100 U, EACH EVENING
  6. PROPOX-N [Concomitant]
  7. PREDNISONE [Concomitant]
  8. GUAIFENESIN W/HYDROCODONE [Concomitant]
  9. CIPROFLOXACIN [Concomitant]
  10. AVELOX [Concomitant]
  11. AMBIEN [Concomitant]
  12. TRAMADOL HCL [Concomitant]
  13. ASMANEX TWISTHALER [Concomitant]
  14. HYDROCODONE BITARTRATE [Concomitant]

REACTIONS (2)
  - CHOLELITHIASIS [None]
  - PANCREATITIS [None]
